FAERS Safety Report 6032589-3 (Version None)
Quarter: 2009Q1

REPORT INFORMATION
  Report Type: 
  Country: None (occurrence: None)
  Receive Date: 20090109
  Receipt Date: 20090102
  Transmission Date: 20090719
  Serious: Yes (Hospitalization, Other)
  Sender: FDA-Public Use
  Company Number: US-BAYER-200814977BCC

PATIENT
  Age: 46 Year
  Sex: Female

DRUGS (2)
  1. ALEVE [Suspect]
     Indication: OVERDOSE
     Dosage: TOTAL DAILY DOSE: 3960 MG  UNIT DOSE: 220 MG
     Dates: start: 20081223
  2. ASPIRIN [Suspect]
     Indication: OVERDOSE
     Dosage: TOTAL DAILY DOSE: 30 DF  UNIT DOSE: 1 DF
     Dates: start: 20081223

REACTIONS (5)
  - HEARING IMPAIRED [None]
  - HYPOACUSIS [None]
  - MULTIPLE DRUG OVERDOSE INTENTIONAL [None]
  - TINNITUS [None]
  - VOMITING [None]
